FAERS Safety Report 21129262 (Version 2)
Quarter: 2022Q3

REPORT INFORMATION
  Report Type: Spontaneous
  Country: US (occurrence: US)
  Receive Date: 20220725
  Receipt Date: 20220805
  Transmission Date: 20221027
  Serious: No
  Sender: FDA-Public Use
  Company Number: US-Blueprint Medicines Corporation-SP-US-2022-002299

PATIENT
  Sex: Female

DRUGS (1)
  1. AYVAKIT [Suspect]
     Active Substance: AVAPRITINIB
     Indication: Haematopoietic neoplasm
     Route: 048
     Dates: start: 20220523

REACTIONS (4)
  - Blood test abnormal [Recovering/Resolving]
  - Somnolence [Recovered/Resolved]
  - Weight decreased [Recovering/Resolving]
  - Skin hyperpigmentation [Recovered/Resolved]
